FAERS Safety Report 21817010 (Version 20)
Quarter: 2023Q4

REPORT INFORMATION
  Report Type: Report from Study
  Country: CN (occurrence: None)
  Receive Date: 20230104
  Receipt Date: 20231121
  Transmission Date: 20240110
  Serious: Yes (Hospitalization)
  Sender: FDA-Public Use
  Company Number: CN-ROCHE-3254209

PATIENT
  Age: 36 Year
  Sex: Female
  Weight: 70 kg

DRUGS (26)
  1. OBINUTUZUMAB [Suspect]
     Active Substance: OBINUTUZUMAB
     Indication: Lupus nephritis
     Dosage: THE  MOST RECENT DOSE OF STUDY DRUG PRIOR TO AE/SAE STARTED ON 01/NOV/2022 12:15 PM END WAS ON SAME
     Route: 042
     Dates: start: 20221018
  2. MYCOPHENOLATE MOFETIL [Suspect]
     Active Substance: MYCOPHENOLATE MOFETIL
     Indication: Lupus nephritis
     Route: 048
     Dates: start: 20221018
  3. MYCOPHENOLATE MOFETIL [Suspect]
     Active Substance: MYCOPHENOLATE MOFETIL
     Dosage: THE MOST RECENT DOSE OF STUDY DRUG PRIOR TO AE/SAE WAS STARTED ON 19/DEC/2022 8:30 AM, DOSE WAS 750
     Route: 048
  4. SPIRONOLACTONE [Concomitant]
     Active Substance: SPIRONOLACTONE
     Indication: Polyuria
     Route: 048
     Dates: start: 20220915, end: 20221228
  5. FUROSEMIDE [Concomitant]
     Active Substance: FUROSEMIDE
     Indication: Polyuria
     Route: 048
     Dates: start: 20220915, end: 20221228
  6. HYDROXYCHLOROQUINE [Concomitant]
     Active Substance: HYDROXYCHLOROQUINE
     Indication: Lupus nephritis
     Route: 048
     Dates: start: 20220915, end: 20221228
  7. CALCIUM CARBONATE [Concomitant]
     Active Substance: CALCIUM CARBONATE
     Indication: Mineral supplementation
     Route: 048
     Dates: start: 20220915, end: 20221228
  8. CALCIUM CARBONATE [Concomitant]
     Active Substance: CALCIUM CARBONATE
     Route: 048
     Dates: start: 20221231
  9. PREDNISONE [Concomitant]
     Active Substance: PREDNISONE
     Indication: Lupus nephritis
     Route: 048
     Dates: start: 20221213, end: 20221226
  10. PREDNISONE [Concomitant]
     Active Substance: PREDNISONE
     Route: 048
     Dates: start: 20221227, end: 20230109
  11. PREDNISONE [Concomitant]
     Active Substance: PREDNISONE
     Route: 048
     Dates: start: 20230110, end: 20230404
  12. PREDNISONE [Concomitant]
     Active Substance: PREDNISONE
     Route: 048
     Dates: start: 20221115, end: 20221212
  13. ENOXAPARIN SODIUM [Concomitant]
     Active Substance: ENOXAPARIN SODIUM
     Indication: Lupus nephritis
     Route: 055
     Dates: start: 20221228, end: 20230103
  14. ATORVASTATIN CALCIUM [Concomitant]
     Active Substance: ATORVASTATIN CALCIUM
     Indication: Lupus nephritis
     Route: 048
     Dates: start: 20221230, end: 20230101
  15. TORSEMIDE [Concomitant]
     Active Substance: TORSEMIDE
     Indication: Lupus nephritis
     Route: 042
     Dates: start: 20230101, end: 20230101
  16. POTASSIUM CHLORIDE [Concomitant]
     Active Substance: POTASSIUM CHLORIDE
     Indication: Lupus nephritis
     Dates: start: 20230101, end: 20230101
  17. CALCITRIOL [Concomitant]
     Active Substance: CALCITRIOL
     Indication: Mineral supplementation
     Route: 048
     Dates: start: 20221231
  18. NADROPARIN CALCIUM [Concomitant]
     Active Substance: NADROPARIN CALCIUM
     Indication: Lupus nephritis
     Dosage: NO
     Route: 055
     Dates: start: 20230104, end: 20230112
  19. COMPOUND ALPHA KETOACID [Concomitant]
     Indication: Lupus nephritis
     Dosage: YES
     Route: 048
     Dates: start: 20230102
  20. IBUPROFEN [Concomitant]
     Active Substance: IBUPROFEN
     Route: 048
     Dates: start: 20221221, end: 20221223
  21. AMBROXOL [Concomitant]
     Active Substance: AMBROXOL
     Route: 055
     Dates: start: 20230103, end: 20230104
  22. AMBROXOL [Concomitant]
     Active Substance: AMBROXOL
     Route: 055
     Dates: start: 20230107, end: 20230112
  23. CALCIUM GLUCONATE [Concomitant]
     Active Substance: CALCIUM GLUCONATE
     Route: 042
     Dates: start: 20230104, end: 20230104
  24. CALCIUM GLUCONATE [Concomitant]
     Active Substance: CALCIUM GLUCONATE
     Route: 042
     Dates: start: 20230106, end: 20230108
  25. NICOTINAMIDE [Concomitant]
     Active Substance: NIACINAMIDE
     Route: 042
     Dates: start: 20230104, end: 20230112
  26. ALBUMIN HUMAN [Concomitant]
     Active Substance: ALBUMIN HUMAN
     Dosage: SUBSEQUENT DOSE ON :04-JAN-2023/06-JAN-2023
     Route: 042
     Dates: start: 20230102, end: 20230102

REACTIONS (1)
  - COVID-19 pneumonia [Recovered/Resolved]

NARRATIVE: CASE EVENT DATE: 20221219
